FAERS Safety Report 6365115-X (Version None)
Quarter: 2009Q3

REPORT INFORMATION
  Report Type: 
  Country: None (occurrence: None)
  Receive Date: 20090919
  Receipt Date: 20090807
  Transmission Date: 20100115
  Serious: No
  Sender: FDA-Public Use
  Company Number: US-ABBOTT-09P-163-0590337-00

PATIENT
  Sex: Female
  Weight: 49.94 kg

DRUGS (2)
  1. HUMIRA [Suspect]
     Indication: CROHN'S DISEASE
     Dates: start: 20080801
  2. FLONASE [Concomitant]
     Indication: HYPERSENSITIVITY

REACTIONS (1)
  - INJECTION SITE PAPULE [None]
